FAERS Safety Report 21145321 (Version 1)
Quarter: 2022Q3

REPORT INFORMATION
  Report Type: Spontaneous
  Country: US (occurrence: US)
  Receive Date: 20220729
  Receipt Date: 20220729
  Transmission Date: 20221027
  Serious: No
  Sender: FDA-Public Use
  Company Number: US-GLAXOSMITHKLINE-US2022111098

PATIENT
  Age: 72 Year
  Sex: Female

DRUGS (1)
  1. ZEJULA [Suspect]
     Active Substance: NIRAPARIB
     Indication: Female reproductive tract carcinoma in situ
     Dosage: 100 MG, QD
     Dates: start: 20220711

REACTIONS (2)
  - Anaemia [Unknown]
  - Nocturia [Unknown]

NARRATIVE: CASE EVENT DATE: 20220701
